FAERS Safety Report 8100765 (Version 3)
Quarter: 2013Q3

REPORT INFORMATION
  Report Type: Report from Study
  Country: CA (occurrence: CA)
  Receive Date: 20110822
  Receipt Date: 20130716
  Transmission Date: 20140515
  Serious: Yes (Death, Hospitalization, Other)
  Sender: FDA-Public Use
  Company Number: PHHY2011CA74221

PATIENT
  Age: 80 Year
  Sex: Male

DRUGS (12)
  1. ACLASTA [Suspect]
     Indication: OSTEOPOROSIS
     Dosage: UNK
     Route: 042
     Dates: start: 20100922
  2. ACLASTA [Suspect]
     Dosage: UNK
     Route: 042
     Dates: start: 20111031
  3. ACLASTA [Suspect]
     Dosage: UNK
     Route: 042
     Dates: start: 20121003
  4. CIPRO//CIPROFLOXACIN [Concomitant]
  5. SERAX [Concomitant]
  6. PREDNISONE [Concomitant]
  7. SEROQUEL [Concomitant]
  8. ZOLOFT [Concomitant]
  9. VIT D [Concomitant]
  10. ADVAIR [Concomitant]
  11. SPIRIVA [Concomitant]
  12. DILAUDID [Concomitant]

REACTIONS (8)
  - Death [Fatal]
  - Pancreatitis [Unknown]
  - Neoplasm [Unknown]
  - Mycobacterial infection [Unknown]
  - Respiratory failure [Unknown]
  - Oxygen saturation decreased [Unknown]
  - Respiratory distress [Unknown]
  - Agitation [Unknown]
